FAERS Safety Report 23748056 (Version 1)
Quarter: 2024Q2

REPORT INFORMATION
  Report Type: Spontaneous
  Country: TH (occurrence: TH)
  Receive Date: 20240416
  Receipt Date: 20240416
  Transmission Date: 20240716
  Serious: Yes (Other)
  Sender: FDA-Public Use
  Company Number: TH-002147023-NVSC2022TH304728

PATIENT

DRUGS (1)
  1. BROLUCIZUMAB [Suspect]
     Active Substance: BROLUCIZUMAB
     Indication: Product used for unknown indication
     Dosage: UNK
     Route: 065
     Dates: start: 20220221

REACTIONS (12)
  - Retinal pigment epitheliopathy [Unknown]
  - Keratic precipitates [Not Recovered/Not Resolved]
  - Blindness [Unknown]
  - Cataract nuclear [Unknown]
  - Eye discharge [Not Recovered/Not Resolved]
  - Eye inflammation [Not Recovered/Not Resolved]
  - Ocular hyperaemia [Not Recovered/Not Resolved]
  - Retinal scar [Unknown]
  - Cataract subcapsular [Unknown]
  - Conjunctival hyperaemia [Unknown]
  - Vision blurred [Not Recovered/Not Resolved]
  - Anterior chamber cell [Not Recovered/Not Resolved]
